FAERS Safety Report 17301271 (Version 1)
Quarter: 2020Q1

REPORT INFORMATION
  Report Type: Report from Study
  Country: US (occurrence: US)
  Receive Date: 20200122
  Receipt Date: 20200122
  Transmission Date: 20200409
  Serious: Yes (Other)
  Sender: FDA-Public Use
  Company Number: US-PFIZER INC-2019421321

PATIENT
  Age: 48 Year
  Sex: Female

DRUGS (1)
  1. IBRANCE [Suspect]
     Active Substance: PALBOCICLIB
     Indication: BREAST CANCER FEMALE
     Dosage: 125 MG, CYCLIC (DAILY FOR 21 DAYS ON, 7 DAYS OFF)
     Route: 048
     Dates: start: 20190918

REACTIONS (9)
  - Alopecia [Recovering/Resolving]
  - Headache [Unknown]
  - Nausea [Recovered/Resolved]
  - Bone marrow failure [Unknown]
  - Fatigue [Not Recovered/Not Resolved]
  - Leukopenia [Unknown]
  - Cough [Unknown]
  - Oropharyngeal pain [Unknown]
  - Chills [Unknown]

NARRATIVE: CASE EVENT DATE: 2019
